FAERS Safety Report 6524792-0 (Version None)
Quarter: 2010Q1

REPORT INFORMATION
  Report Type: 
  Country: None (occurrence: None)
  Receive Date: 20100104
  Receipt Date: 20091221
  Transmission Date: 20100710
  Serious: Yes (Death, Hospitalization, Other)
  Sender: FDA-Public Use
  Company Number: US-ELI_LILLY_AND_COMPANY-US200911005954

PATIENT
  Sex: Female
  Weight: 63.492 kg

DRUGS (4)
  1. PROZAC [Suspect]
     Indication: DEPRESSION
     Dosage: 40 MG, DAILY (1/D)
     Route: 065
     Dates: start: 20010101, end: 20090101
  2. ATIVAN [Concomitant]
     Dosage: 0.5 MG, EVERY 3 HRS
     Route: 065
  3. REGLAN [Concomitant]
     Indication: NAUSEA
     Dosage: UNK, UNKNOWN
     Route: 065
  4. PROMETHAZINE [Concomitant]
     Indication: NAUSEA
     Dosage: UNK, UNKNOWN
     Route: 065

REACTIONS (8)
  - AMYLOIDOSIS [None]
  - DEATH [None]
  - DYSPHAGIA [None]
  - GASTROINTESTINAL HYPOMOTILITY [None]
  - MULTIPLE MYELOMA [None]
  - RENAL FAILURE [None]
  - STARVATION [None]
  - TONGUE PARALYSIS [None]
